FAERS Safety Report 14996942 (Version 1)
Quarter: 2018Q2

REPORT INFORMATION
  Report Type: Spontaneous
  Country: DE (occurrence: DE)
  Receive Date: 20180611
  Receipt Date: 20180611
  Transmission Date: 20180711
  Serious: Yes (Hospitalization)
  Sender: FDA-Public Use
  Company Number: DE-TEVA-2018-DE-905161

PATIENT
  Age: 78 Year
  Sex: Male

DRUGS (12)
  1. RISPERIDONE. [Suspect]
     Active Substance: RISPERIDONE
     Dosage: 0.5 MG, 1-1-1-0
     Route: 065
  2. DIAZEPAM. [Concomitant]
     Active Substance: DIAZEPAM
     Dosage: 5 MG, BEDARF
     Route: 054
  3. TAVOR [Concomitant]
     Dosage: 1 MG, NEEDS
     Route: 065
  4. FOLSAN [Concomitant]
     Active Substance: FOLIC ACID
     Dosage: 5 MG, 1-0-0-0
     Route: 065
  5. DOXEPIN [Suspect]
     Active Substance: DOXEPIN
     Dosage: 100 MG, 0-0-0-0.25
     Route: 065
  6. KORODIN [Concomitant]
     Active Substance: CAMPHOR (SYNTHETIC)\MENTHOL
     Dosage: NK MG, NEEDS
     Route: 065
  7. PHENHYDAN 100MG [Suspect]
     Active Substance: PHENYTOIN
     Dosage: 100 MG, 1-0-2-0
     Route: 065
  8. SIMVASTATIN. [Concomitant]
     Active Substance: SIMVASTATIN
     Dosage: 40 MG, 0-0-1-0
     Route: 065
  9. PHENPROCOUMON [Suspect]
     Active Substance: PHENPROCOUMON
     Dosage: 3 MG, NACH INR
     Route: 065
  10. PANTOPRAZOL [Concomitant]
     Active Substance: PANTOPRAZOLE SODIUM
     Dosage: 40 MG, 1-0-0-0
     Route: 065
  11. METOPROLOL. [Concomitant]
     Active Substance: METOPROLOL
     Dosage: 47.5 MG, 1-0-0-0
     Route: 065
  12. LEVODOPA/BENSERAZID [Suspect]
     Active Substance: BENSERAZIDE\LEVODOPA
     Dosage: 100|25 MG, 1-0-1-0
     Route: 065

REACTIONS (4)
  - Fracture [Unknown]
  - Fall [Unknown]
  - Soft tissue swelling [Unknown]
  - Soft tissue haemorrhage [Unknown]
